FAERS Safety Report 9690147 (Version 3)
Quarter: 2013Q4

REPORT INFORMATION
  Report Type: Report from Study
  Country: TH (occurrence: TH)
  Receive Date: 20131115
  Receipt Date: 20131206
  Transmission Date: 20140711
  Serious: Yes (Death, Hospitalization)
  Sender: FDA-Public Use
  Company Number: PHHY2013TH130296

PATIENT
  Sex: Female

DRUGS (7)
  1. TASIGNA [Suspect]
     Indication: CHRONIC MYELOID LEUKAEMIA
     Dosage: 400 MG, BID
     Route: 048
     Dates: start: 20111012, end: 20111026
  2. TASIGNA [Suspect]
     Dosage: 400 MG, BID
     Route: 048
     Dates: start: 20111123, end: 20120111
  3. TASIGNA [Suspect]
     Dosage: 400 MG, BID
     Route: 048
     Dates: start: 20120328, end: 20120816
  4. MIXTARD                            /00806401/ [Concomitant]
  5. AMITRIPTYLINE [Concomitant]
  6. DILANTIN//PHENYTOIN [Concomitant]
  7. PARACETAMOL [Concomitant]

REACTIONS (11)
  - Febrile neutropenia [Fatal]
  - Blast crisis in myelogenous leukaemia [Fatal]
  - Malignant neoplasm progression [Fatal]
  - Hypophagia [Unknown]
  - Asthenia [Unknown]
  - Platelet count decreased [Unknown]
  - Blood potassium decreased [Unknown]
  - Contusion [Unknown]
  - Pain [Unknown]
  - Nausea [Unknown]
  - Decreased appetite [Unknown]
